FAERS Safety Report 9662593 (Version 2)
Quarter: 2013Q4

REPORT INFORMATION
  Report Type: Spontaneous
  Country: US (occurrence: US)
  Receive Date: 20131031
  Receipt Date: 20131031
  Transmission Date: 20140711
  Serious: No
  Sender: FDA-Public Use
  Company Number: US-PURDUE-USA-2011-0070283

PATIENT
  Sex: Male

DRUGS (4)
  1. OXYCONTIN (NDA 22-272) [Suspect]
     Indication: BACK PAIN
     Dosage: 20 MG, Q12H
  2. IMODIUM [Concomitant]
     Indication: DIARRHOEA
  3. POLYCARBOPHIL [Concomitant]
  4. FIBERCHOICE [Concomitant]
     Indication: DIARRHOEA

REACTIONS (2)
  - Medication residue present [Unknown]
  - Back pain [Unknown]
